FAERS Safety Report 8084624-9 (Version None)
Quarter: 2012Q1

REPORT INFORMATION
  Report Type: 
  Country: None (occurrence: None)
  Receive Date: 20120128
  Receipt Date: 20110329
  Transmission Date: 20120608
  Serious: No
  Sender: FDA-Public Use
  Company Number: US-ABBOTT-11P-163-0715359-00

PATIENT
  Age: 63 Year
  Sex: Female

DRUGS (6)
  1. PREMARIN [Concomitant]
     Indication: HYSTERECTOMY
  2. HUMIRA [Suspect]
     Indication: FIBROMYALGIA
     Dates: start: 20090901
  3. VITAMIN TAB [Concomitant]
     Indication: PRODUCT USED FOR UNKNOWN INDICATION
  4. MAXZIDE [Concomitant]
     Indication: OEDEMA PERIPHERAL
     Dosage: 75/50MG DAILY
  5. AMITRIPTYLINE HCL [Concomitant]
     Indication: FIBROMYALGIA
     Dosage: 50 MG AT BEDTIME
  6. AMBIEN [Concomitant]
     Indication: INSOMNIA
     Dosage: 5-10MG PRN

REACTIONS (5)
  - FIBROMYALGIA [None]
  - WRONG TECHNIQUE IN DRUG USAGE PROCESS [None]
  - INCORRECT ROUTE OF DRUG ADMINISTRATION [None]
  - DRUG DOSE OMISSION [None]
  - PAIN [None]
